FAERS Safety Report 16798696 (Version 6)
Quarter: 2022Q3

REPORT INFORMATION
  Report Type: Report from Study
  Country: GB (occurrence: GB)
  Receive Date: 20190912
  Receipt Date: 20220720
  Transmission Date: 20221027
  Serious: Yes (Other)
  Sender: FDA-Public Use
  Company Number: GB-IPSEN Group, Research and Development-2019-13802

PATIENT
  Age: 65 Year
  Sex: Female
  Weight: 47 kg

DRUGS (1)
  1. LANREOTIDE ACETATE [Suspect]
     Active Substance: LANREOTIDE ACETATE
     Indication: Neuroendocrine tumour
     Dosage: 120 MG/ 0.5ML SOLUTION
     Route: 058
     Dates: start: 20190802

REACTIONS (9)
  - Alopecia [Not Recovered/Not Resolved]
  - Neoplasm progression [Unknown]
  - Emotional distress [Unknown]
  - Fatigue [Unknown]
  - Nausea [Unknown]
  - Malaise [Unknown]
  - Diarrhoea [Not Recovered/Not Resolved]
  - Abdominal discomfort [Unknown]
  - Gastroenteritis viral [Unknown]

NARRATIVE: CASE EVENT DATE: 20191201
